FAERS Safety Report 26039476 (Version 1)
Quarter: 2025Q4

REPORT INFORMATION
  Report Type: Spontaneous
  Country: US (occurrence: US)
  Receive Date: 20251113
  Receipt Date: 20251113
  Transmission Date: 20260117
  Serious: Yes (Hospitalization, Other)
  Sender: MERCK SHARP & DOHME LLC
  Company Number: US-009507513-2346081

PATIENT

DRUGS (1)
  1. KEYTRUDA [Suspect]
     Active Substance: PEMBROLIZUMAB
     Indication: Clear cell renal cell carcinoma
     Dosage: UNKNOWN/ EVERY 6 WEEKS
     Dates: start: 202304

REACTIONS (4)
  - Adrenal insufficiency [Not Recovered/Not Resolved]
  - Hypothyroidism [Not Recovered/Not Resolved]
  - Muscle spasms [Unknown]
  - Colitis [Recovered/Resolved]

NARRATIVE: CASE EVENT DATE: 20230101
